FAERS Safety Report 23340035 (Version 1)
Quarter: 2023Q4

REPORT INFORMATION
  Report Type: Spontaneous
  Country: CN (occurrence: CN)
  Receive Date: 20231227
  Receipt Date: 20231227
  Transmission Date: 20240109
  Serious: Yes (Other)
  Sender: FDA-Public Use
  Company Number: CN-JNJFOC-20231250865

PATIENT
  Age: 14 Year
  Sex: Female
  Weight: 44 kg

DRUGS (2)
  1. RISPERDAL [Suspect]
     Active Substance: RISPERIDONE
     Indication: Psychiatric symptom
     Route: 048
     Dates: start: 20231124, end: 20231125
  2. RISPERDAL [Suspect]
     Active Substance: RISPERIDONE
     Dosage: TO CONTROL PSYCHIATRIC SYMPTOMS OF THE PATIENT.
     Route: 048
     Dates: start: 20231125, end: 20231218

REACTIONS (2)
  - Gaze palsy [Recovering/Resolving]
  - Extrapyramidal disorder [Recovering/Resolving]

NARRATIVE: CASE EVENT DATE: 20231124
